FAERS Safety Report 16860421 (Version 2)
Quarter: 2020Q3

REPORT INFORMATION
  Report Type: Spontaneous
  Country: US (occurrence: US)
  Receive Date: 20190927
  Receipt Date: 20200827
  Transmission Date: 20201102
  Serious: No
  Sender: FDA-Public Use
  Company Number: US-GILEAD-2019-0429722

PATIENT
  Age: 37 Year
  Sex: Male
  Weight: 86.17 kg

DRUGS (47)
  1. TRUVADA [Suspect]
     Active Substance: EMTRICITABINE\TENOFOVIR DISOPROXIL FUMARATE
     Indication: HIV INFECTION
     Dosage: UNK
     Route: 048
     Dates: start: 20090819, end: 20120919
  2. STRIBILD [Suspect]
     Active Substance: COBICISTAT\ELVITEGRAVIR\EMTRICITABINE\TENOFOVIR DISOPROXIL FUMARATE
     Dosage: UNK
     Route: 065
     Dates: start: 20121106, end: 20151120
  3. JULUCA [Concomitant]
     Active Substance: DOLUTEGRAVIR SODIUM\RILPIVIRINE HYDROCHLORIDE
  4. DEXTROAMPHETAMINE [DEXAMFETAMINE] [Concomitant]
     Active Substance: DEXTROAMPHETAMINE
  5. ESCITALOPRAM [Concomitant]
     Active Substance: ESCITALOPRAM OXALATE
  6. SULFAMETHOXAZOLE [Concomitant]
     Active Substance: SULFAMETHOXAZOLE
  7. LORATADINE. [Concomitant]
     Active Substance: LORATADINE
  8. M NATAL PLUS [Concomitant]
  9. PERMETHRIN. [Concomitant]
     Active Substance: PERMETHRIN
  10. PROAIR HFA [Concomitant]
     Active Substance: ALBUTEROL SULFATE
  11. BACLOFEN. [Concomitant]
     Active Substance: BACLOFEN
  12. CIPROFLOXACIN. [Concomitant]
     Active Substance: CIPROFLOXACIN
  13. CYANOCOBALAMIN. [Concomitant]
     Active Substance: CYANOCOBALAMIN
  14. NAPROXEN. [Concomitant]
     Active Substance: NAPROXEN
  15. TRIAMCINOLONE [Concomitant]
     Active Substance: TRIAMCINOLONE
  16. NORCO [Concomitant]
     Active Substance: ACETAMINOPHEN\HYDROCODONE BITARTRATE
  17. TOPAMAX [Concomitant]
     Active Substance: TOPIRAMATE
  18. CETIRIZINE [Concomitant]
     Active Substance: CETIRIZINE HYDROCHLORIDE
  19. NYSTATIN. [Concomitant]
     Active Substance: NYSTATIN
  20. TIZANIDINE HCL [Concomitant]
     Active Substance: TIZANIDINE HYDROCHLORIDE
  21. SUSTIVA [Concomitant]
     Active Substance: EFAVIRENZ
  22. PREDNISONE. [Concomitant]
     Active Substance: PREDNISONE
  23. SEROSTIM [Concomitant]
     Active Substance: SOMATROPIN
  24. VENTOLIN [Concomitant]
     Active Substance: ALBUTEROL SULFATE
  25. ZOLPIDEM TARTATE [Concomitant]
     Active Substance: ZOLPIDEM TARTRATE
  26. STRIBILD [Suspect]
     Active Substance: COBICISTAT\ELVITEGRAVIR\EMTRICITABINE\TENOFOVIR DISOPROXIL FUMARATE
     Indication: HIV INFECTION
     Dosage: UNK
     Route: 048
     Dates: start: 20161106, end: 2018
  27. ISENTRESS [Concomitant]
     Active Substance: RALTEGRAVIR POTASSIUM
  28. AMOXI CLAV [Concomitant]
     Active Substance: AMOXICILLIN\CLAVULANATE POTASSIUM
  29. AVELOX [Concomitant]
     Active Substance: MOXIFLOXACIN HYDROCHLORIDE
  30. DOXYCYCLINE. [Concomitant]
     Active Substance: DOXYCYCLINE
  31. GABAPENTIN. [Concomitant]
     Active Substance: GABAPENTIN
  32. KETOCONAZOLE. [Concomitant]
     Active Substance: KETOCONAZOLE
  33. LEVAQUIN [Concomitant]
     Active Substance: LEVOFLOXACIN
  34. NORDITROPIN [Concomitant]
     Active Substance: SOMATROPIN
  35. OXANDROLONE. [Concomitant]
     Active Substance: OXANDROLONE
  36. GENVOYA [Concomitant]
     Active Substance: COBICISTAT\ELVITEGRAVIR\EMTRICITABINE\TENOFOVIR ALAFENAMIDE FUMARATE
  37. SELZENTRY [Concomitant]
     Active Substance: MARAVIROC
  38. PENICILLIN [PENICILLIN NOS] [Concomitant]
     Active Substance: PENICILLIN
  39. TESTOSTERONE. [Concomitant]
     Active Substance: TESTOSTERONE
  40. SUMATRIPTAN. [Concomitant]
     Active Substance: SUMATRIPTAN
  41. VALACYCLOVIR [Concomitant]
     Active Substance: VALACYCLOVIR HYDROCHLORIDE
  42. BUPROPION HCL [Concomitant]
     Active Substance: BUPROPION HYDROCHLORIDE
  43. DRONABINOL. [Concomitant]
     Active Substance: DRONABINOL
  44. FLUCONAZOLE. [Concomitant]
     Active Substance: FLUCONAZOLE
  45. MUPIROCIN. [Concomitant]
     Active Substance: MUPIROCIN
  46. OMEPRAZOLE. [Concomitant]
     Active Substance: OMEPRAZOLE
  47. PREPLUS CA [Concomitant]

REACTIONS (14)
  - Depression [Not Recovered/Not Resolved]
  - Osteopenia [Not Recovered/Not Resolved]
  - Emotional distress [Not Recovered/Not Resolved]
  - Anhedonia [Not Recovered/Not Resolved]
  - Blood urine present [Recovered/Resolved]
  - Anxiety [Not Recovered/Not Resolved]
  - Loss of personal independence in daily activities [Not Recovered/Not Resolved]
  - Quality of life decreased [Not Recovered/Not Resolved]
  - Fear [Not Recovered/Not Resolved]
  - Economic problem [Not Recovered/Not Resolved]
  - Joint noise [Not Recovered/Not Resolved]
  - Decreased activity [Not Recovered/Not Resolved]
  - Back pain [Not Recovered/Not Resolved]
  - Pain [Not Recovered/Not Resolved]

NARRATIVE: CASE EVENT DATE: 2011
